FAERS Safety Report 10402973 (Version 2)
Quarter: 2014Q3

REPORT INFORMATION
  Report Type: Spontaneous
  Country: US (occurrence: None)
  Receive Date: 20140820
  Receipt Date: 20140912
  Transmission Date: 20150326
  Serious: Yes (Hospitalization, Other)
  Sender: FDA-Public Use
  Company Number: 2014VID00028

PATIENT
  Age: 88 Year
  Sex: Male
  Weight: 88.9 kg

DRUGS (33)
  1. KLOR-CON [Concomitant]
     Active Substance: POTASSIUM CHLORIDE
  2. VITAMIN D (ERGOCALCIFEROL) [Concomitant]
     Active Substance: ERGOCALCIFEROL
  3. CARDIZEM (DILTIAZEM HCL) [Concomitant]
  4. INSULIN ASPART [Concomitant]
     Active Substance: INSULIN ASPART
  5. OCUVITE (BETA-CAROTENE/VITAMIN C/VITAMIN E) [Concomitant]
  6. MUCINEX (GUAIFENESIN) [Concomitant]
  7. ALLEGRA [Concomitant]
     Active Substance: FEXOFENADINE HYDROCHLORIDE
  8. BABY ASPIRIN [Concomitant]
     Active Substance: ASPIRIN
  9. PLAVIX [Concomitant]
     Active Substance: CLOPIDOGREL BISULFATE
  10. TRUSOPT (DORZOLAMIDE 2%) [Concomitant]
  11. XALATAN (LATANOPROST 0.005%) [Concomitant]
  12. COMBIVENT (IPRATROPIUM/ALBUTEROL) [Concomitant]
  13. SODIUM CHLORIDE 0.65% [Concomitant]
     Active Substance: SODIUM CHLORIDE
  14. METFORMIN [Concomitant]
     Active Substance: METFORMIN HYDROCHLORIDE
  15. ENOXAPARIN SODIUM. [Concomitant]
     Active Substance: ENOXAPARIN SODIUM
  16. PREDNISONE. [Concomitant]
     Active Substance: PREDNISONE
  17. NEXIUM [Concomitant]
     Active Substance: ESOMEPRAZOLE MAGNESIUM
  18. FLONASE SPRAY (FLUTICASONE) [Concomitant]
  19. LIPITOR [Concomitant]
     Active Substance: ATORVASTATIN CALCIUM
  20. PRED FORTE (PREDNISONE ACETATE 1%) [Concomitant]
  21. LASIX [Concomitant]
     Active Substance: FUROSEMIDE
  22. MAGNESIUM OXIDE. [Concomitant]
     Active Substance: MAGNESIUM OXIDE
  23. MOXIFLOXACIN HCL [Concomitant]
     Active Substance: MOXIFLOXACIN
  24. HYDROCORTISONE SODIUM SUCCINATE [Concomitant]
     Active Substance: HYDROCORTISONE SODIUM SUCCINATE
  25. DEXTROSE/WATER [Concomitant]
  26. PRINIVIL (LISINOPRIL) [Concomitant]
  27. ASMANEX TWISTHALER (MOMETASONE FUROATE) 110 UG [Concomitant]
  28. ALBUTEROL NEBULIZER 2.5 MG [Concomitant]
  29. PHENOL LOZ [Concomitant]
  30. ACTIMMUNE [Suspect]
     Active Substance: INTERFERON GAMMA-1B
     Indication: IDIOPATHIC PULMONARY FIBROSIS
     Dosage: 200 UG, 3X/WEEK, SUBCUTANEOUS
     Route: 058
     Dates: start: 20050516, end: 201406
  31. SPIRIVA [Concomitant]
     Active Substance: TIOTROPIUM BROMIDE MONOHYDRATE
  32. LEVOFLOXACIN [Concomitant]
     Active Substance: LEVOFLOXACIN
  33. SINGULAIR [Concomitant]
     Active Substance: MONTELUKAST SODIUM

REACTIONS (29)
  - Transient ischaemic attack [None]
  - Cerebrovascular accident [None]
  - Blood urea nitrogen/creatinine ratio increased [None]
  - Hypokalaemia [None]
  - Rales [None]
  - Atelectasis [None]
  - Dyspnoea [None]
  - Hypotension [None]
  - Aortic valve calcification [None]
  - Blood urea increased [None]
  - Anaemia [None]
  - Muscular weakness [None]
  - Off label use [None]
  - Glaucoma [None]
  - Macular degeneration [None]
  - Respiratory alkalosis [None]
  - Left atrial dilatation [None]
  - Presyncope [None]
  - Dehydration [None]
  - Bronchiectasis [None]
  - Asthenia [None]
  - Mitral valve incompetence [None]
  - Aortic stenosis [None]
  - Lacunar infarction [None]
  - Hyperglycaemia [None]
  - Mitral valve calcification [None]
  - Economic problem [None]
  - Syncope [None]
  - Contusion [None]

NARRATIVE: CASE EVENT DATE: 201406
